FAERS Safety Report 5726900-8 (Version None)
Quarter: 2008Q2

REPORT INFORMATION
  Report Type: 
  Country: None (occurrence: None)
  Receive Date: 20080502
  Receipt Date: 20080422
  Transmission Date: 20081010
  Serious: Yes (Hospitalization, Other)
  Sender: FDA-Public Use
  Company Number: CA-PFIZER INC-2008036542

PATIENT
  Age: 78 Year
  Sex: Male

DRUGS (1)
  1. GABAPENTIN [Suspect]
     Indication: TRIGEMINAL NEURALGIA

REACTIONS (6)
  - COGNITIVE DISORDER [None]
  - CREUTZFELDT-JAKOB DISEASE [None]
  - ELECTROENCEPHALOGRAM ABNORMAL [None]
  - FALL [None]
  - GAIT DISTURBANCE [None]
  - MYOCLONUS [None]
